FAERS Safety Report 7001027-6 (Version None)
Quarter: 2010Q3

REPORT INFORMATION
  Report Type: 
  Country: None (occurrence: None)
  Receive Date: 20100920
  Receipt Date: 20070511
  Transmission Date: 20110219
  Serious: Yes (Other)
  Sender: FDA-Public Use
  Company Number: US-ASTRAZENECA-2006UW26492

PATIENT
  Sex: Male
  Weight: 113.4 kg

DRUGS (11)
  1. SEROQUEL [Suspect]
     Route: 048
     Dates: end: 20050801
  2. SEROQUEL [Suspect]
     Dosage: 100-800 MG
     Route: 048
     Dates: start: 20050317, end: 20060411
  3. ZYPREXA [Suspect]
     Dates: start: 20010101, end: 20040101
  4. ZYPREXA [Suspect]
     Dates: start: 20050317, end: 20050616
  5. ABILIFY [Concomitant]
  6. CLOZARIL [Concomitant]
  7. NAVANE [Concomitant]
  8. RISPERDAL [Concomitant]
  9. ARIPIPRAZOLE [Concomitant]
     Dosage: 10-15 MG
     Dates: start: 20060330, end: 20060702
  10. CHLORPROMAZINE [Concomitant]
     Dates: start: 20060330, end: 20060628
  11. ESCITALOPRAM [Concomitant]
     Dates: start: 20050325, end: 20050823

REACTIONS (2)
  - DIABETES MELLITUS [None]
  - PANCREATITIS [None]
